FAERS Safety Report 5226041-2 (Version None)
Quarter: 2007Q1

REPORT INFORMATION
  Report Type: 
  Country: None (occurrence: None)
  Receive Date: 20070129
  Receipt Date: 20070117
  Transmission Date: 20070707
  Serious: Yes (Hospitalization)
  Sender: FDA-Public Use
  Company Number: 2007SP000868

PATIENT
  Age: 56 Year
  Sex: Male

DRUGS (4)
  1. DESLORATADINE [Suspect]
     Indication: URTICARIA
     Dosage: 5 MG;QD;PO
     Route: 048
     Dates: start: 20061115, end: 20061116
  2. PERMIXON [Concomitant]
  3. NEXIUM [Concomitant]
  4. ATARAX [Concomitant]

REACTIONS (7)
  - ABDOMINAL PAIN UPPER [None]
  - BLOOD AMYLASE INCREASED [None]
  - BLOOD GLUCOSE INCREASED [None]
  - INFLAMMATION [None]
  - LIPASE INCREASED [None]
  - LOSS OF CONSCIOUSNESS [None]
  - PANCREATIC DISORDER [None]
